FAERS Safety Report 25882043 (Version 3)
Quarter: 2025Q4

REPORT INFORMATION
  Report Type: Report from Study
  Country: PE (occurrence: PE)
  Receive Date: 20251006
  Receipt Date: 20251024
  Transmission Date: 20260117
  Serious: No
  Sender: JOHNSON AND JOHNSON
  Company Number: PE-JNJFOC-20250939206

PATIENT
  Age: 25 Year
  Sex: Male

DRUGS (2)
  1. TREMFYA [Suspect]
     Active Substance: GUSELKUMAB
     Indication: Psoriatic arthropathy
     Route: 058
     Dates: start: 20230925
  2. TREMFYA [Suspect]
     Active Substance: GUSELKUMAB

REACTIONS (5)
  - Device deployment issue [Unknown]
  - Incorrect dose administered [Unknown]
  - Accidental exposure to product [Unknown]
  - Injection site pain [Unknown]
  - Administration site irritation [Unknown]

NARRATIVE: CASE EVENT DATE: 20250921
